FAERS Safety Report 14198504 (Version 2)
Quarter: 2022Q2

REPORT INFORMATION
  Report Type: Report from Study
  Country: US (occurrence: None)
  Receive Date: 20171117
  Receipt Date: 20220425
  Transmission Date: 20220721
  Serious: Yes (Hospitalization)
  Sender: FDA-Public Use
  Company Number: US-ROCHE-2027122

PATIENT
  Age: 75 Year
  Sex: Female
  Weight: 76.6 kg

DRUGS (14)
  1. VENETOCLAX [Suspect]
     Active Substance: VENETOCLAX
     Indication: Diffuse large B-cell lymphoma
     Dosage: ADMINISTERED DAYS 1-10 OF EACH 21-DAY CYCLE, WITH THE EXCEPTION OF CYCLE 1, DURING WHICH VENETOCLAX
     Route: 048
     Dates: start: 20170504
  2. VENETOCLAX [Suspect]
     Active Substance: VENETOCLAX
     Dosage: CYCLE 4 DAY 1: 24/JUL/2017
     Route: 048
     Dates: start: 20170605
  3. RITUXIMAB [Suspect]
     Active Substance: RITUXIMAB
     Indication: Diffuse large B-cell lymphoma
     Route: 042
     Dates: start: 20170428
  4. RITUXIMAB [Suspect]
     Active Substance: RITUXIMAB
     Dosage: CYCLE 4 DAY 1: 24/JUL/2017
     Route: 042
     Dates: start: 20170605
  5. ETOPOSIDE [Suspect]
     Active Substance: ETOPOSIDE
     Indication: Diffuse large B-cell lymphoma
     Dosage: GIVEN FOR 6 CYCLES
     Route: 042
     Dates: start: 20170428
  6. ETOPOSIDE [Suspect]
     Active Substance: ETOPOSIDE
     Dosage: CYCLE 4 DAY 1: 24/JUL/2017
     Route: 042
     Dates: start: 20170605
  7. CYCLOPHOSPHAMIDE [Suspect]
     Active Substance: CYCLOPHOSPHAMIDE
     Indication: Diffuse large B-cell lymphoma
     Dosage: GIVEN FOR 6 CYCLES
     Route: 042
     Dates: start: 20170428
  8. CYCLOPHOSPHAMIDE [Suspect]
     Active Substance: CYCLOPHOSPHAMIDE
     Dosage: CYCLE 4 DAY 1: 24/JUL/2017
     Route: 042
     Dates: start: 20170605
  9. PREDNISONE [Suspect]
     Active Substance: PREDNISONE
     Indication: Diffuse large B-cell lymphoma
     Dosage: GIVEN FOR 6 CYCLES
     Route: 048
     Dates: start: 20170428
  10. PREDNISONE [Suspect]
     Active Substance: PREDNISONE
     Dosage: CYCLE 4 DAY 1: 24/JUL/2017
     Route: 048
     Dates: start: 20170605
  11. DOXORUBICIN HYDROCHLORIDE [Suspect]
     Active Substance: DOXORUBICIN HYDROCHLORIDE
     Indication: Diffuse large B-cell lymphoma
     Dosage: GIVEN FOR 6 CYCLES
     Route: 042
     Dates: start: 20170428
  12. DOXORUBICIN HYDROCHLORIDE [Suspect]
     Active Substance: DOXORUBICIN HYDROCHLORIDE
     Dosage: CYCLE 4 DAY 1: 24/JUL/2017
     Route: 042
     Dates: start: 20170605
  13. VINCRISTINE [Suspect]
     Active Substance: VINCRISTINE
     Indication: Diffuse large B-cell lymphoma
     Dosage: GIVEN FOR 6 CYCLES
     Route: 042
     Dates: start: 20170428
  14. VINCRISTINE [Suspect]
     Active Substance: VINCRISTINE
     Dosage: CYCLE 4 DAY 1: 24/JUL/2017
     Route: 042
     Dates: start: 20170605

REACTIONS (6)
  - Bacteraemia [Unknown]
  - Pneumonia klebsiella [Unknown]
  - Nausea [Unknown]
  - Chills [Unknown]
  - Headache [Unknown]
  - Haemorrhoids [Unknown]

NARRATIVE: CASE EVENT DATE: 20170803
